FAERS Safety Report 24273370 (Version 1)
Quarter: 2024Q3

REPORT INFORMATION
  Report Type: Spontaneous
  Country: US (occurrence: US)
  Receive Date: 20240902
  Receipt Date: 20240902
  Transmission Date: 20241017
  Serious: Yes (Other)
  Sender: CSL BEHRING
  Company Number: US-BEH-2024177977

PATIENT
  Sex: Female

DRUGS (11)
  1. HIZENTRA [Suspect]
     Active Substance: HUMAN IMMUNOGLOBULIN G
     Indication: Hypergammaglobulinaemia
     Dosage: 10G,  QW,10 GM/50 ML: INFUSE 70 ML(14GM) SUBCUTANEOUSLY ONCE A WEEK VIA FREEDOM PUMP
     Route: 058
     Dates: start: 20240228
  2. HIZENTRA [Suspect]
     Active Substance: HUMAN IMMUNOGLOBULIN G
     Dosage: 4 G, QW 4 GM/20 ML: INFUSE 70 ML(14GM) SUBCUTANEOUSLY ONCE A WEEK VIA FREEDOM PUMP
     Route: 058
     Dates: start: 20240228
  3. ALLEGRA [Concomitant]
     Active Substance: FEXOFENADINE HYDROCHLORIDE
  4. ASPIRIN [Concomitant]
     Active Substance: ASPIRIN
  5. FAMOTIDINE [Concomitant]
     Active Substance: FAMOTIDINE
  6. HYDROCHLOROTHIAZIDE [Concomitant]
     Active Substance: HYDROCHLOROTHIAZIDE
  7. LIDOCAINE [Concomitant]
     Active Substance: LIDOCAINE
  8. RESTASIS [Concomitant]
     Active Substance: CYCLOSPORINE
  9. ROSUVASTATIN [Concomitant]
     Active Substance: ROSUVASTATIN\ROSUVASTATIN CALCIUM
  10. SOTALOL [Concomitant]
     Active Substance: SOTALOL\SOTALOL HYDROCHLORIDE
  11. XHANCE [Concomitant]
     Active Substance: FLUTICASONE PROPIONATE

REACTIONS (1)
  - Drug ineffective [Unknown]
